FAERS Safety Report 8678167 (Version 2)
Quarter: 2012Q4

REPORT INFORMATION
  Report Type: 
  Country: US (occurrence: US)
  Receive Date: 20120723
  Receipt Date: 20121005
  Transmission Date: 20130627
  Serious: Yes (Hospitalization, Other)
  Sender: FDA-Public Use
  Company Number: US-ELI_LILLY_AND_COMPANY-US201207003904

PATIENT
  Age: 57 Year
  Sex: Male

DRUGS (4)
  1. HUMULIN REGULAR [Suspect]
     Indication: DIABETES MELLITUS
     Dosage: UNK
     Dates: start: 2009
  2. LANTUS [Concomitant]
  3. METFORMIN [Concomitant]
     Dosage: 100 mg, bid
  4. BYETTA [Concomitant]

REACTIONS (8)
  - Dyspnoea [Unknown]
  - Atrial fibrillation [Unknown]
  - Cardiac disorder [Unknown]
  - Heart rate increased [Unknown]
  - Hyperthyroidism [Unknown]
  - Neuropathy peripheral [Unknown]
  - Carpal tunnel syndrome [Unknown]
  - Hypoaesthesia [Unknown]
